FAERS Safety Report 9282998 (Version 1)
Quarter: 2013Q2

REPORT INFORMATION
  Report Type: Spontaneous
  Country: US (occurrence: US)
  Receive Date: 20130510
  Receipt Date: 20130510
  Transmission Date: 20140414
  Serious: No
  Sender: FDA-Public Use
  Company Number: US-GLAXOSMITHKLINE-A0972033A

PATIENT
  Age: 46 Year
  Sex: Female

DRUGS (6)
  1. TYKERB [Suspect]
     Indication: BREAST CANCER
     Dosage: 5TAB PER DAY
     Route: 048
     Dates: start: 20120330
  2. PREVACID [Concomitant]
  3. ZYRTEC [Concomitant]
  4. IMODIUM [Concomitant]
  5. CYMBALTA [Concomitant]
  6. FENTANYL PATCH [Concomitant]

REACTIONS (3)
  - Flatulence [Recovering/Resolving]
  - Diarrhoea [Unknown]
  - Abdominal discomfort [Unknown]
